FAERS Safety Report 5098175-7 (Version None)
Quarter: 2006Q3

REPORT INFORMATION
  Report Type: 
  Country: None (occurrence: None)
  Receive Date: 20060906
  Receipt Date: 20060516
  Transmission Date: 20061208
  Serious: No
  Sender: FDA-Public Use
  Company Number: US-GLAXOSMITHKLINE-A0605800A

PATIENT
  Age: 62 Year
  Sex: Female

DRUGS (7)
  1. REQUIP [Suspect]
     Indication: RESTLESS LEGS SYNDROME
     Dosage: 3MG PER DAY
     Route: 048
     Dates: start: 20051001
  2. NABUMETONE [Concomitant]
  3. KLOR-CON [Concomitant]
  4. CALCIUM GLUCONATE [Concomitant]
  5. ASCORBIC ACID [Concomitant]
  6. MULTI-VITAMIN [Concomitant]
  7. FUROSEMIDE [Concomitant]

REACTIONS (5)
  - DYSPNOEA [None]
  - ERYTHEMA [None]
  - INSOMNIA [None]
  - NASAL CONGESTION [None]
  - OEDEMA PERIPHERAL [None]
